FAERS Safety Report 15316224 (Version 1)
Quarter: 2018Q3

REPORT INFORMATION
  Report Type: Spontaneous
  Country: US (occurrence: US)
  Receive Date: 20180816
  Receipt Date: 20180816
  Transmission Date: 20181010
  Serious: Yes (Hospitalization, Other)
  Sender: FDA-Public Use
  Company Number: None

PATIENT
  Age: 21 Year
  Sex: Female
  Weight: 65.25 kg

DRUGS (4)
  1. TETRACAINE HYDROCHLORIDE 0.5% [Suspect]
     Active Substance: TETRACAINE HYDROCHLORIDE
     Indication: PRODUCT USED FOR UNKNOWN INDICATION
     Route: 047
     Dates: start: 20180815
  2. MICROGESTIN FE [Concomitant]
     Active Substance: ETHINYL ESTRADIOL\FERROUS FUMARATE\NORETHINDRONE ACETATE
  3. DULOXETINE. [Concomitant]
     Active Substance: DULOXETINE
  4. CLARITIN [Concomitant]
     Active Substance: LORATADINE

REACTIONS (3)
  - Nausea [None]
  - Loss of consciousness [None]
  - Hyperhidrosis [None]

NARRATIVE: CASE EVENT DATE: 20180815
